FAERS Safety Report 10234812 (Version 1)
Quarter: 2014Q2

REPORT INFORMATION
  Report Type: Spontaneous
  Country: US (occurrence: US)
  Receive Date: 20140613
  Receipt Date: 20140613
  Transmission Date: 20141212
  Serious: No
  Sender: FDA-Public Use
  Company Number: US-TEVA-468592USA

PATIENT
  Sex: Female

DRUGS (1)
  1. IRBESARTAN [Suspect]

REACTIONS (4)
  - Malaise [Unknown]
  - Dizziness [Unknown]
  - Disturbance in attention [Unknown]
  - Tremor [Unknown]
